FAERS Safety Report 8336058-7 (Version None)
Quarter: 2012Q2

REPORT INFORMATION
  Report Type: 
  Country: None (occurrence: None)
  Receive Date: 20120504
  Receipt Date: 20120427
  Transmission Date: 20120825
  Serious: Yes (Other)
  Sender: FDA-Public Use
  Company Number: JP-JNJFOC-20120406209

PATIENT
  Age: 64 Year

DRUGS (3)
  1. FENTANYL-100 [Suspect]
     Route: 062
  2. FENTANYL-100 [Suspect]
     Indication: CANCER PAIN
     Dosage: TWO 75 UG/HR PATCHES
     Route: 062
  3. FENTANYL-100 [Suspect]
     Dosage: REPORTED AS 2.5 UG/HR
     Route: 062

REACTIONS (6)
  - MEMORY IMPAIRMENT [None]
  - DELIRIUM [None]
  - PRODUCT QUALITY ISSUE [None]
  - INCORRECT DRUG ADMINISTRATION DURATION [None]
  - CONDITION AGGRAVATED [None]
  - DRUG PRESCRIBING ERROR [None]
